FAERS Safety Report 22284310 (Version 1)
Quarter: 2023Q2

REPORT INFORMATION
  Report Type: Spontaneous
  Country: US (occurrence: None)
  Receive Date: 20230503
  Receipt Date: 20230503
  Transmission Date: 20230721
  Serious: No
  Sender: FDA-Public Use
  Company Number: None

PATIENT
  Age: 29 Year
  Sex: Female

DRUGS (1)
  1. VEKLURY [Suspect]
     Active Substance: REMDESIVIR
     Dosage: 200 MG INTRAVENOUS
     Route: 042
     Dates: start: 20230202, end: 20230202

REACTIONS (7)
  - Headache [None]
  - Vertigo [None]
  - Infusion related reaction [None]
  - Flushing [None]
  - Nausea [None]
  - Vomiting [None]
  - Tremor [None]

NARRATIVE: CASE EVENT DATE: 20230202
